FAERS Safety Report 18550440 (Version 1)
Quarter: 2020Q4

REPORT INFORMATION
  Report Type: Report from Study
  Country: US (occurrence: US)
  Receive Date: 20201126
  Receipt Date: 20201126
  Transmission Date: 20210114
  Serious: Yes (Hospitalization, Other)
  Sender: FDA-Public Use
  Company Number: US-BAUSCH-BL-2020-034340

PATIENT
  Age: 69 Year
  Sex: Female

DRUGS (1)
  1. XIFAXAN [Suspect]
     Active Substance: RIFAXIMIN
     Indication: PRODUCT USED FOR UNKNOWN INDICATION
     Route: 065

REACTIONS (6)
  - Varices oesophageal [Unknown]
  - Weight decreased [Unknown]
  - Portal hypertensive gastropathy [Unknown]
  - Renal failure [Unknown]
  - Fluid overload [Unknown]
  - Liver disorder [Unknown]

NARRATIVE: CASE EVENT DATE: 20191209
